FAERS Safety Report 10541780 (Version 1)
Quarter: 2014Q4

REPORT INFORMATION
  Report Type: Spontaneous
  Country: None (occurrence: US)
  Receive Date: 20141024
  Receipt Date: 20141024
  Transmission Date: 20150529
  Serious: No
  Sender: FDA-Public Use
  Company Number: US-ALLERGAN-1419266US

PATIENT
  Age: 69 Year
  Sex: Female

DRUGS (1)
  1. ALPHAGAN P [Suspect]
     Active Substance: BRIMONIDINE TARTRATE
     Indication: GLAUCOMA
     Dosage: 2 GTT, BID
     Route: 047
     Dates: start: 20140828, end: 20140903

REACTIONS (5)
  - Hypersensitivity [Unknown]
  - Swelling face [Unknown]
  - Eyelids pruritus [Unknown]
  - Eye pruritus [Unknown]
  - Ocular hyperaemia [Unknown]
